FAERS Safety Report 7432691-5 (Version None)
Quarter: 2011Q2

REPORT INFORMATION
  Report Type: 
  Country: None (occurrence: None)
  Receive Date: 20110415
  Receipt Date: 20110331
  Transmission Date: 20111010
  Serious: Yes (Hospitalization)
  Sender: FDA-Public Use
  Company Number: AUR-APL-2011-01070

PATIENT
  Age: 71 Year
  Sex: Male
  Weight: 83.9 kg

DRUGS (17)
  1. COREG [Concomitant]
  2. METHIMAZOLE [Suspect]
     Indication: HYPERTHYROIDISM
     Dosage: 10MG-BID-ORAL
     Route: 048
     Dates: start: 20110204, end: 20110315
  3. VITAMIN B-12 [Concomitant]
  4. PREDNISONE [Concomitant]
  5. FLOMAX [Concomitant]
  6. SIMVASTATIN [Suspect]
     Dosage: 40MG-DAILY-ORAL
     Route: 048
     Dates: start: 20050429, end: 20110315
  7. COLECALCIFEROL [Concomitant]
  8. PRINIVIL [Concomitant]
  9. LIRAGLUTIDE [Concomitant]
  10. LANTUS [Concomitant]
  11. LASIX [Concomitant]
  12. AMIODARONE HCL [Suspect]
     Dosage: ORAL
     Route: 048
     Dates: start: 20070712
  13. EPLERENONE [Suspect]
     Indication: CARDIAC FAILURE CONGESTIVE
     Dosage: 25MG-QOD-ORAL
     Route: 048
     Dates: start: 20100915
  14. WARFARIN [Concomitant]
  15. ASPIRIN [Concomitant]
  16. NOVOLOG [Concomitant]
  17. LANOXIN [Concomitant]

REACTIONS (18)
  - HYPERTHYROIDISM [None]
  - ASTHENIA [None]
  - URINARY RETENTION [None]
  - LIVER FUNCTION TEST ABNORMAL [None]
  - CHOLECYSTITIS [None]
  - ATRIAL FLUTTER [None]
  - MUSCULOSKELETAL CHEST PAIN [None]
  - BRONCHIECTASIS [None]
  - FAT NECROSIS [None]
  - EXCESSIVE GRANULATION TISSUE [None]
  - ALANINE AMINOTRANSFERASE INCREASED [None]
  - BLOOD GLUCOSE ABNORMAL [None]
  - BLOOD GLUCOSE INCREASED [None]
  - JAUNDICE [None]
  - HAEMATOMA [None]
  - LYMPHADENOPATHY [None]
  - CHOLELITHIASIS [None]
  - THYROIDITIS [None]
